FAERS Safety Report 15696262 (Version 2)
Quarter: 2019Q2

REPORT INFORMATION
  Report Type: Spontaneous
  Country: AU (occurrence: AU)
  Receive Date: 20181206
  Receipt Date: 20190611
  Transmission Date: 20190711
  Serious: Yes (Hospitalization, Other)
  Sender: FDA-Public Use
  Company Number: AU-MYLANLABS-2018M1088246

PATIENT
  Age: 23 Year
  Sex: Male

DRUGS (3)
  1. CLOZARIL [Suspect]
     Active Substance: CLOZAPINE
     Dosage: UNK
     Route: 048
     Dates: start: 20181119, end: 201811
  2. CLOZARIL [Suspect]
     Active Substance: CLOZAPINE
     Indication: SCHIZOPHRENIA
     Dosage: UNK
     Route: 048
     Dates: start: 20141224
  3. CLOZARIL [Suspect]
     Active Substance: CLOZAPINE
     Dosage: 250 MILLIGRAM
     Route: 048
     Dates: start: 20190410, end: 2019

REACTIONS (7)
  - Lymphocyte count decreased [Unknown]
  - Heart rate increased [Unknown]
  - Schizophrenia [Unknown]
  - Blood pressure decreased [Unknown]
  - Eosinophil count decreased [Unknown]
  - Hospitalisation [Unknown]
  - Red cell distribution width decreased [Recovered/Resolved]

NARRATIVE: CASE EVENT DATE: 20180628
